FAERS Safety Report 9543984 (Version 3)
Quarter: 2013Q4

REPORT INFORMATION
  Report Type: Report from Study
  Country: US (occurrence: US)
  Receive Date: 20130923
  Receipt Date: 20131115
  Transmission Date: 20140711
  Serious: Yes (Death, Hospitalization)
  Sender: FDA-Public Use
  Company Number: US-TEVA-433288USA

PATIENT
  Age: 66 Year
  Sex: Male

DRUGS (2)
  1. CLOZAPINE [Suspect]
     Indication: SCHIZOAFFECTIVE DISORDER
     Route: 048
  2. CLOZAPINE [Suspect]
     Indication: SCHIZOPHRENIA

REACTIONS (5)
  - Gastrointestinal haemorrhage [Unknown]
  - Intestinal obstruction [Unknown]
  - Abdominal pain [Unknown]
  - Rectal haemorrhage [Unknown]
  - Death [Fatal]
